FAERS Safety Report 18490477 (Version 1)
Quarter: 2020Q4

REPORT INFORMATION
  Report Type: Spontaneous
  Country: US (occurrence: US)
  Receive Date: 20201111
  Receipt Date: 20201111
  Transmission Date: 20210114
  Serious: Yes (Other)
  Sender: FDA-Public Use
  Company Number: None

PATIENT
  Age: 55 Year
  Sex: Male
  Weight: 87.75 kg

DRUGS (1)
  1. ATORVASTATIN 10MG TAB TEV TV 5056 [Suspect]
     Active Substance: ATORVASTATIN CALCIUM
     Indication: BLOOD CHOLESTEROL
     Dosage: ?          QUANTITY:1 TABLET(S);?
     Route: 048
     Dates: start: 20200928, end: 20201108

REACTIONS (6)
  - Agitation [None]
  - Presyncope [None]
  - Anger [None]
  - Depression [None]
  - Anxiety [None]
  - Dizziness [None]

NARRATIVE: CASE EVENT DATE: 20201108
